FAERS Safety Report 6385561-8 (Version None)
Quarter: 2009Q4

REPORT INFORMATION
  Report Type: 
  Country: None (occurrence: None)
  Receive Date: 20091002
  Receipt Date: 20080922
  Transmission Date: 20100525
  Serious: No
  Sender: FDA-Public Use
  Company Number: US-ASTRAZENECA-2008UW19866

PATIENT
  Age: 77 Year
  Sex: Female

DRUGS (7)
  1. ARIMIDEX [Suspect]
     Route: 048
     Dates: start: 20050101
  2. ASACOL [Concomitant]
  3. ATENOLOL [Concomitant]
  4. PLAVIX [Concomitant]
  5. CALCIUM [Concomitant]
  6. ASPIRIN [Concomitant]
  7. HYDROCHLOROTHIAZIDE [Concomitant]

REACTIONS (3)
  - NAUSEA [None]
  - POSTNASAL DRIP [None]
  - THROAT IRRITATION [None]
